FAERS Safety Report 8791482 (Version 1)
Quarter: 2012Q4

REPORT INFORMATION
  Report Type: Spontaneous
  Country: US (occurrence: None)
  Receive Date: 20120911
  Receipt Date: 20120911
  Transmission Date: 20130627
  Serious: Yes (Hospitalization, Other)
  Sender: FDA-Public Use
  Company Number: 001333560A

PATIENT
  Age: 56 Year
  Sex: Female

DRUGS (1)
  1. HYDROGEN PEROXIDE\SODIUM BICARBONATE [Suspect]
     Route: 048
     Dates: start: 20120720, end: 20120727

REACTIONS (2)
  - Aphthous stomatitis [None]
  - Oral infection [None]
